FAERS Safety Report 25613667 (Version 1)
Quarter: 2025Q3

REPORT INFORMATION
  Report Type: Spontaneous
  Country: US (occurrence: None)
  Receive Date: 20250728
  Receipt Date: 20250728
  Transmission Date: 20251020
  Serious: Yes (Disabling)
  Sender: FDA-CTU
  Company Number: None

PATIENT
  Age: 75 Year
  Sex: Male
  Weight: 81 kg

DRUGS (2)
  1. ALBUTEROL\IPRATROPIUM [Suspect]
     Active Substance: ALBUTEROL\IPRATROPIUM
     Dates: start: 20250725, end: 20250725
  2. REFRESH SOLUTION NOS [Suspect]
     Active Substance: CARBOXYMETHYLCELLULOSE SODIUM\GLYCERIN

REACTIONS (5)
  - Blindness [None]
  - Eye pain [None]
  - Chemical burns of eye [None]
  - Product appearance confusion [None]
  - Wrong product administered [None]

NARRATIVE: CASE EVENT DATE: 20250725
